FAERS Safety Report 16497586 (Version 2)
Quarter: 2019Q3

REPORT INFORMATION
  Report Type: Report from Study
  Country: None (occurrence: CO)
  Receive Date: 20190628
  Receipt Date: 20190904
  Transmission Date: 20191004
  Serious: Yes (Other)
  Sender: FDA-Public Use
  Company Number: CO-ABBVIE-19K-036-2835626-00

PATIENT
  Age: 17 Year
  Sex: Male
  Weight: 53 kg

DRUGS (3)
  1. LEFLUNOMIDE. [Concomitant]
     Active Substance: LEFLUNOMIDE
     Indication: JUVENILE IDIOPATHIC ARTHRITIS
     Route: 048
  2. HUMIRA [Suspect]
     Active Substance: ADALIMUMAB
     Indication: JUVENILE IDIOPATHIC ARTHRITIS
     Route: 058
     Dates: start: 20150909
  3. HUMIRA [Suspect]
     Active Substance: ADALIMUMAB
     Indication: JUVENILE IDIOPATHIC ARTHRITIS
     Route: 058

REACTIONS (11)
  - Choking [Recovering/Resolving]
  - Choking [Recovered/Resolved]
  - Joint swelling [Unknown]
  - Burning sensation [Unknown]
  - Inflammation [Unknown]
  - Chest pain [Recovered/Resolved]
  - Chest pain [Recovering/Resolving]
  - Arthritis [Recovering/Resolving]
  - Arthritis [Unknown]
  - Mass [Unknown]
  - Arthralgia [Unknown]

NARRATIVE: CASE EVENT DATE: 2018
